FAERS Safety Report 14036101 (Version 2)
Quarter: 2018Q4

REPORT INFORMATION
  Report Type: Spontaneous
  Country: US (occurrence: US)
  Receive Date: 20171003
  Receipt Date: 20181010
  Transmission Date: 20190204
  Serious: No
  Sender: FDA-Public Use
  Company Number: US-ROCHE-1938526

PATIENT
  Age: 68 Year
  Sex: Female

DRUGS (1)
  1. ZELBORAF [Suspect]
     Active Substance: VEMURAFENIB
     Indication: PRODUCT USED FOR UNKNOWN INDICATION
     Dosage: 2 DOSAGE FORMS OF 240 MG TWICE A DAY
     Route: 048
     Dates: start: 20161026

REACTIONS (3)
  - Pain [Unknown]
  - Arthralgia [Unknown]
  - Sunburn [Unknown]

NARRATIVE: CASE EVENT DATE: 20170930
